FAERS Safety Report 25664625 (Version 1)
Quarter: 2025Q3

REPORT INFORMATION
  Report Type: Spontaneous
  Country: US (occurrence: US)
  Receive Date: 20250811
  Receipt Date: 20250811
  Transmission Date: 20251020
  Serious: No
  Sender: ABBVIE
  Company Number: US-ABBVIE-6405630

PATIENT
  Sex: Female

DRUGS (2)
  1. LO LOESTRIN FE [Suspect]
     Active Substance: ETHINYL ESTRADIOL\NORETHINDRONE ACETATE
     Indication: Contraception
     Dosage: (NORETHINDRONE 1MG;ETHINYL ESTRAD 10?G;ETHINYL ESTRAD 10?G TAB (TBD)
     Route: 048
  2. CELEXA [Concomitant]
     Active Substance: CITALOPRAM HYDROBROMIDE
     Indication: Weight decreased

REACTIONS (2)
  - Muscle spasms [Unknown]
  - Rectal haemorrhage [Recovered/Resolved]
